FAERS Safety Report 20976624 (Version 1)
Quarter: 2022Q2

REPORT INFORMATION
  Report Type: Spontaneous
  Country: US (occurrence: None)
  Receive Date: 20220617
  Receipt Date: 20220617
  Transmission Date: 20220721
  Serious: No
  Sender: FDA-Public Use
  Company Number: None

PATIENT

DRUGS (1)
  1. ALBUMIN HUMAN [Suspect]
     Active Substance: ALBUMIN HUMAN
     Dosage: OTHER STRENGTH : 5%25GM;?

REACTIONS (3)
  - Drug dispensed to wrong patient [None]
  - Wrong product administered [None]
  - Transcription medication error [None]
